FAERS Safety Report 4596165-1 (Version None)
Quarter: 2005Q1

REPORT INFORMATION
  Report Type: 
  Country: None (occurrence: None)
  Receive Date: 20050225
  Receipt Date: 20050217
  Transmission Date: 20050727
  Serious: Yes (Other)
  Sender: FDA-Public Use
  Company Number: HQWYE403318FEB05

PATIENT
  Age: 6 Year
  Sex: Male
  Weight: 23.61 kg

DRUGS (3)
  1. CHILDREN'S ADVIL [Suspect]
     Indication: PYREXIA
     Dosage: 1 AND 3/4 OF A TEASPOON, ONE TIME, ORAL
     Route: 048
     Dates: start: 20050215, end: 20050215
  2. TYLENOL CHILDRENS (PARACETAMOL) [Concomitant]
  3. ALBUTEROL [Concomitant]

REACTIONS (4)
  - ANAPHYLACTIC SHOCK [None]
  - EYE SWELLING [None]
  - PRURITUS [None]
  - WHEEZING [None]
